FAERS Safety Report 6188755-X (Version None)
Quarter: 2009Q2

REPORT INFORMATION
  Report Type: 
  Country: None (occurrence: None)
  Receive Date: 20090513
  Receipt Date: 20090507
  Transmission Date: 20091009
  Serious: Yes (Life-Threatening)
  Sender: FDA-Public Use
  Company Number: JP-BAYER-200911159BYL

PATIENT
  Age: 42 Year
  Sex: Male
  Weight: 81 kg

DRUGS (16)
  1. KOGENATE FS [Suspect]
     Indication: FACTOR VIII DEFICIENCY
     Dosage: UNIT DOSE: 500 IU
     Route: 042
     Dates: start: 20060504, end: 20060504
  2. KOGENATE FS [Suspect]
     Dosage: UNIT DOSE: 500 IU
     Route: 042
     Dates: start: 20060504, end: 20060504
  3. KOGENATE FS [Suspect]
     Dosage: TOTAL DAILY DOSE: 4000 IU  UNIT DOSE: 500 IU
     Route: 042
     Dates: start: 20060505, end: 20060515
  4. KOGENATE FS [Suspect]
     Dosage: TOTAL DAILY DOSE: 4000 IU  UNIT DOSE: 500 IU
     Route: 042
     Dates: start: 20060505, end: 20060515
  5. KOGENATE FS [Suspect]
     Dosage: TOTAL DAILY DOSE: 3000 IU  UNIT DOSE: 500 IU
     Route: 042
     Dates: start: 20060516, end: 20060522
  6. KOGENATE FS [Suspect]
     Dosage: TOTAL DAILY DOSE: 3000 IU  UNIT DOSE: 500 IU
     Route: 042
     Dates: start: 20060516, end: 20060522
  7. KOGENATE FS [Suspect]
     Dosage: TOTAL DAILY DOSE: 2000 IU  UNIT DOSE: 500 IU
     Route: 042
     Dates: start: 20060523, end: 20060525
  8. KOGENATE FS [Suspect]
     Dosage: TOTAL DAILY DOSE: 2000 IU  UNIT DOSE: 500 IU
     Route: 042
     Dates: start: 20060523, end: 20060525
  9. KOGENATE FS [Suspect]
     Dosage: UNIT DOSE: 500 IU
     Route: 042
     Dates: start: 20060526, end: 20060602
  10. KOGENATE FS [Suspect]
     Dosage: UNIT DOSE: 500 IU
     Route: 042
     Dates: start: 20060526, end: 20060602
  11. FRESH FROZEN PLASMA [Concomitant]
     Indication: SHOCK HAEMORRHAGIC
     Dosage: AS USED: 5 U
     Route: 042
     Dates: start: 20060420, end: 20060420
  12. FRESH FROZEN PLASMA [Concomitant]
     Route: 042
     Dates: start: 20060422, end: 20060422
  13. RED BLOOD CELLS [Concomitant]
     Indication: TRANSFUSION
     Route: 042
     Dates: start: 20060420, end: 20060420
  14. RED BLOOD CELLS [Concomitant]
     Route: 042
     Dates: start: 20060422, end: 20060422
  15. NOVOSEVEN [Concomitant]
     Route: 042
     Dates: start: 20060603, end: 20060605
  16. TRANSAMIN [Concomitant]
     Route: 041

REACTIONS (1)
  - FACTOR VIII INHIBITION [None]
